FAERS Safety Report 7466798-3 (Version None)
Quarter: 2011Q2

REPORT INFORMATION
  Report Type: 
  Country: None (occurrence: None)
  Receive Date: 20110428
  Receipt Date: 20110427
  Transmission Date: 20111010
  Serious: Yes (Death)
  Sender: FDA-Public Use
  Company Number: GRT 2011-11772

PATIENT
  Sex: Male

DRUGS (1)
  1. LIDODERM [Suspect]
     Dates: start: 20100317

REACTIONS (1)
  - VENTRICULAR FIBRILLATION [None]
